FAERS Safety Report 19710745 (Version 2)
Quarter: 2021Q4

REPORT INFORMATION
  Report Type: Spontaneous
  Country: CA (occurrence: None)
  Receive Date: 20210816
  Receipt Date: 20211206
  Transmission Date: 20220303
  Serious: Yes (Life-Threatening)
  Sender: FDA-Public Use
  Company Number: 2021A676287

PATIENT
  Sex: Male

DRUGS (12)
  1. DAPAGLIFLOZIN [Suspect]
     Active Substance: DAPAGLIFLOZIN
     Route: 048
     Dates: start: 20171012, end: 20210329
  2. ACETAMINOPHEN [Concomitant]
     Active Substance: ACETAMINOPHEN
  3. ASPIRIN [Concomitant]
     Active Substance: ASPIRIN
  4. CHLORHEXIDINE [Concomitant]
     Active Substance: CHLORHEXIDINE
  5. HYDROMORPHONE [Concomitant]
     Active Substance: HYDROMORPHONE
  6. MAGNESIUM HYDROXIDE [Concomitant]
     Active Substance: MAGNESIUM HYDROXIDE
  7. MAGNESIUM SULFATE [Concomitant]
     Active Substance: MAGNESIUM SULFATE
  8. METOPROLOL [Concomitant]
     Active Substance: METOPROLOL
  9. NOREPINEPHRINE [Concomitant]
     Active Substance: NOREPINEPHRINE
  10. PROPOFOL [Concomitant]
     Active Substance: PROPOFOL
  11. ROSUVATSATIN [Concomitant]
     Route: 058
  12. SODIUM BICARBONATE [Concomitant]
     Active Substance: SODIUM BICARBONATE

REACTIONS (2)
  - Cardiovascular disorder [Unknown]
  - Euglycaemic diabetic ketoacidosis [Unknown]
